FAERS Safety Report 19888515 (Version 1)
Quarter: 2021Q3

REPORT INFORMATION
  Report Type: Spontaneous
  Country: US (occurrence: US)
  Receive Date: 20210927
  Receipt Date: 20210927
  Transmission Date: 20211014
  Serious: No
  Sender: FDA-Public Use
  Company Number: US-KVK-TECH, INC-20210100015

PATIENT
  Age: 58 Year
  Sex: Female
  Weight: 108.84 kg

DRUGS (5)
  1. OXYCODONE HYDROCHLORIDE TABLETS, USP [Suspect]
     Active Substance: OXYCODONE HYDROCHLORIDE
     Indication: PAIN
     Dosage: INITIALLY SHE WAS TAKING 60 MG A DAY
     Route: 048
  2. OXYCODONE HYDROCHLORIDE TABLETS, USP [Suspect]
     Active Substance: OXYCODONE HYDROCHLORIDE
     Dosage: SHE HERSELF HAS TITRATED IT TO 20 MG ONCE A DAY, SHE TAKES 1 PILL 12 HOURS APART (ONE 10 MG PILL NOO
  3. BACLOFEN. [Concomitant]
     Active Substance: BACLOFEN
     Indication: MUSCLE SPASMS
     Dosage: 10 MILLIGRAM, QD
  4. ZOLOFT [Concomitant]
     Active Substance: SERTRALINE HYDROCHLORIDE
     Indication: DEPRESSION
     Dosage: 50 MILLIGRAM, QD
  5. OXYCODONE [Concomitant]
     Active Substance: OXYCODONE

REACTIONS (6)
  - Tinnitus [Recovered/Resolved]
  - Diarrhoea [Recovered/Resolved]
  - Pruritus [Recovered/Resolved]
  - Pharyngeal paraesthesia [Recovered/Resolved]
  - Intentional underdose [Unknown]
  - Constipation [Recovered/Resolved]
